FAERS Safety Report 8833220 (Version 1)
Quarter: 2012Q4

REPORT INFORMATION
  Report Type: 
  Country: US (occurrence: US)
  Receive Date: 20121010
  Receipt Date: 20121010
  Transmission Date: 20130627
  Serious: No
  Sender: FDA-Public Use
  Company Number: US-009507513-1210USA003272

PATIENT

DRUGS (1)
  1. SINGULAIR [Suspect]
     Dosage: UNK
     Route: 048
     Dates: start: 20121002, end: 201210

REACTIONS (4)
  - Emotional disorder [Unknown]
  - Mood altered [Unknown]
  - Crying [Unknown]
  - Abnormal dreams [Unknown]
